FAERS Safety Report 5232066-3 (Version None)
Quarter: 2007Q1

REPORT INFORMATION
  Report Type: 
  Country: None (occurrence: None)
  Receive Date: 20061201
  Receipt Date: 20060829
  Transmission Date: 20070707
  Serious: No
  Sender: FDA-Public Use
  Company Number: US200608006356

PATIENT
  Age: 38 Year

DRUGS (2)
  1. CYMBALTA [Suspect]
     Indication: PAIN
     Dosage: ORAL
     Route: 048
  2. TYLENOL W/ CODEINE NO. 3 [Concomitant]

REACTIONS (2)
  - FEELING HOT [None]
  - PARAESTHESIA [None]
